FAERS Safety Report 8832113 (Version 2)
Quarter: 2012Q4

REPORT INFORMATION
  Report Type: Report from Study
  Country: PL (occurrence: PL)
  Receive Date: 20121009
  Receipt Date: 20121015
  Transmission Date: 20130627
  Serious: Yes (Other)
  Sender: FDA-Public Use
  Company Number: PL-ROCHE-1142399

PATIENT
  Sex: Female
  Weight: 71 kg

DRUGS (10)
  1. MABTHERA [Suspect]
     Indication: RHEUMATOID ARTHRITIS
     Route: 042
     Dates: start: 20120320
  2. METHOTREXATE [Concomitant]
     Indication: RHEUMATOID ARTHRITIS
     Route: 048
     Dates: start: 2008
  3. ACIDUM FOLICUM [Concomitant]
     Route: 048
     Dates: start: 2008
  4. METYPRED (POLAND) [Concomitant]
     Indication: RHEUMATOID ARTHRITIS
     Route: 048
     Dates: start: 2008
  5. METHIMAZOLE [Concomitant]
     Indication: HYPERTHYROIDISM
     Route: 048
     Dates: start: 2008
  6. BONVIVA [Concomitant]
     Indication: OSTEOPOROSIS
     Route: 048
     Dates: start: 201209
  7. VITAMIN B6 [Concomitant]
     Route: 048
     Dates: start: 2008
  8. CALPEROS [Concomitant]
     Indication: OSTEOPOROSIS
     Route: 048
     Dates: start: 2008
  9. VIGANTOLETTEN [Concomitant]
     Indication: OSTEOPOROSIS
     Route: 048
     Dates: start: 2008
  10. ZALDIAR [Concomitant]
     Indication: ANALGESIC THERAPY
     Route: 065
     Dates: start: 2008

REACTIONS (1)
  - Cervical vertebral fracture [Not Recovered/Not Resolved]
